FAERS Safety Report 9349863 (Version 1)
Quarter: 2013Q2

REPORT INFORMATION
  Report Type: Spontaneous
  Country: US (occurrence: None)
  Receive Date: 20130611
  Receipt Date: 20130611
  Transmission Date: 20140414
  Serious: Yes (Other)
  Sender: FDA-Public Use
  Company Number: USA/USA/13/0029880

PATIENT
  Age: 80 Year
  Sex: Male

DRUGS (4)
  1. OLANZAPINE [Suspect]
     Indication: BIPOLAR DISORDER
  2. ASPIRIN (ACETYLSALICYLIC ACID) [Concomitant]
  3. INULIN (INSULIN) [Concomitant]
  4. AMLODIPINE BESYLATE (AMLODIPINE BESYLATE) [Concomitant]

REACTIONS (4)
  - Hypothermia [None]
  - Bradycardia [None]
  - Mental status changes [None]
  - Dyspnoea [None]
